FAERS Safety Report 11734598 (Version 1)
Quarter: 2015Q4

REPORT INFORMATION
  Report Type: Spontaneous
  Country: US (occurrence: US)
  Receive Date: 20151113
  Receipt Date: 20151113
  Transmission Date: 20160304
  Serious: No
  Sender: FDA-Public Use
  Company Number: US-DRREDDYS-USA/USA/15/0050151

PATIENT
  Age: 77 Year
  Sex: Female
  Weight: 54.4 kg

DRUGS (1)
  1. FAMOTIDINE OTC [Suspect]
     Active Substance: FAMOTIDINE
     Indication: DYSPEPSIA
     Route: 048
     Dates: start: 20150731

REACTIONS (2)
  - Night sweats [Unknown]
  - Hot flush [Unknown]

NARRATIVE: CASE EVENT DATE: 20150807
